FAERS Safety Report 12217366 (Version 1)
Quarter: 2016Q1

REPORT INFORMATION
  Report Type: Spontaneous
  Country: TR (occurrence: TR)
  Receive Date: 20160329
  Receipt Date: 20160329
  Transmission Date: 20160526
  Serious: Yes (Other)
  Sender: FDA-Public Use
  Company Number: TR-TEVA-645025ISR

PATIENT
  Age: 26 Year
  Sex: Female

DRUGS (5)
  1. ENBREL [Suspect]
     Active Substance: ETANERCEPT
     Dates: start: 2005, end: 2010
  2. SALAZOPYRIN [Suspect]
     Active Substance: SULFASALAZINE
  3. ENBREL [Suspect]
     Active Substance: ETANERCEPT
     Indication: PSORIATIC ARTHROPATHY
     Dates: start: 2010
  4. METHOTREXATE (METHOTREXATE SODIUM) [Suspect]
     Active Substance: METHOTREXATE SODIUM
     Dosage: UNKNOWN
  5. ENBREL [Suspect]
     Active Substance: ETANERCEPT
     Dates: start: 201003

REACTIONS (2)
  - Alopecia [Unknown]
  - Angioedema [Recovered/Resolved]

NARRATIVE: CASE EVENT DATE: 20100525
